FAERS Safety Report 15956914 (Version 2)
Quarter: 2019Q1

REPORT INFORMATION
  Report Type: Report from Study
  Country: MX (occurrence: MX)
  Receive Date: 20190213
  Receipt Date: 20190226
  Transmission Date: 20190417
  Serious: Yes (Other)
  Sender: FDA-Public Use
  Company Number: PHHY2018MX193017

PATIENT
  Age: 82 Year
  Sex: Male
  Weight: 69 kg

DRUGS (2)
  1. ENTRESTO [Suspect]
     Active Substance: SACUBITRIL\VALSARTAN
     Dosage: 1.5 DF (100 MG), BID (IN THE MORNING AND IN THE EVENING)
     Route: 048
     Dates: start: 20181211
  2. ENTRESTO [Suspect]
     Active Substance: SACUBITRIL\VALSARTAN
     Indication: PRODUCT USED FOR UNKNOWN INDICATION
     Dosage: 2 DF (100 MG), (1 AND 1/2 IN THE MORNING AND 1/2 IN THE NIGHT)
     Route: 048
     Dates: start: 20180822, end: 20181211

REACTIONS (6)
  - Dizziness [Unknown]
  - Fall [Unknown]
  - Product prescribing error [Unknown]
  - Prostate cancer [Unknown]
  - Cerebral haematoma [Unknown]
  - Wrong technique in product usage process [Unknown]

NARRATIVE: CASE EVENT DATE: 20180822
